FAERS Safety Report 7270820-7 (Version None)
Quarter: 2011Q1

REPORT INFORMATION
  Report Type: 
  Country: None (occurrence: None)
  Receive Date: 20110125
  Receipt Date: 20110125
  Transmission Date: 20110831
  Serious: Yes (Death)
  Sender: FDA-Public Use
  Company Number: None

PATIENT
  Age: 53 Year
  Sex: Male
  Weight: 77.1115 kg

DRUGS (1)
  1. ZOCOR [Suspect]
     Indication: CORONARY ARTERY DISEASE
     Dosage: 40 MG ONCE NIGHTLY
     Dates: start: 20090818, end: 20091107

REACTIONS (6)
  - COMPLETED SUICIDE [None]
  - STRESS [None]
  - NAUSEA [None]
  - GASTRIC DISORDER [None]
  - DELUSIONAL DISORDER, SOMATIC TYPE [None]
  - WEIGHT DECREASED [None]
